FAERS Safety Report 5311768-4 (Version None)
Quarter: 2007Q2

REPORT INFORMATION
  Report Type: 
  Country: None (occurrence: None)
  Receive Date: 20070430
  Receipt Date: 20060313
  Transmission Date: 20071010
  Serious: No
  Sender: FDA-Public Use
  Company Number: 2006UW04246

PATIENT
  Age: 59 Year
  Sex: Female
  Weight: 113.4 kg

DRUGS (8)
  1. NEXIUM [Suspect]
     Indication: GASTROOESOPHAGEAL REFLUX DISEASE
     Route: 048
     Dates: start: 20040101
  2. AVAPRO [Concomitant]
  3. NORVASC [Concomitant]
  4. IBUPROFEN [Concomitant]
  5. ADVAIR DISKUS 100/50 [Concomitant]
  6. ALBUTEROL [Concomitant]
  7. SINGULAIR [Concomitant]
  8. CLONIDINE [Concomitant]

REACTIONS (3)
  - DYSPHONIA [None]
  - STOMACH DISCOMFORT [None]
  - THROAT IRRITATION [None]
